FAERS Safety Report 8378317-8 (Version None)
Quarter: 2012Q2

REPORT INFORMATION
  Report Type: 
  Country: None (occurrence: None)
  Receive Date: 20120522
  Receipt Date: 20120517
  Transmission Date: 20120825
  Serious: Yes (Death, Hospitalization)
  Sender: FDA-Public Use
  Company Number: KR-PFIZER INC-2012119864

PATIENT
  Age: 51 Year
  Sex: Male

DRUGS (4)
  1. AZITHROMYCIN [Suspect]
     Indication: PNEUMONIA
  2. VANCOMYCIN [Suspect]
     Indication: PNEUMONIA BACTERIAL
  3. CEFTRIAXONE [Suspect]
     Indication: PNEUMONIA
  4. COLISTIN [Suspect]
     Indication: PNEUMONIA BACTERIAL

REACTIONS (1)
  - PNEUMONIA BACTERIAL [None]
